FAERS Safety Report 19238090 (Version 1)
Quarter: 2021Q2

REPORT INFORMATION
  Report Type: Spontaneous
  Country: US (occurrence: US)
  Receive Date: 20210510
  Receipt Date: 20210510
  Transmission Date: 20210717
  Serious: Yes (Life-Threatening, Hospitalization)
  Sender: FDA-Public Use
  Company Number: None

PATIENT
  Age: 85 Year
  Sex: Male
  Weight: 74 kg

DRUGS (1)
  1. ISONIAZID. [Suspect]
     Active Substance: ISONIAZID
     Indication: TUBERCULOSIS
     Route: 048
     Dates: start: 20210128, end: 20210228

REACTIONS (13)
  - Mycobacterial infection [None]
  - Abscess [None]
  - Abdominal tenderness [None]
  - Back pain [None]
  - Abdominal pain [None]
  - Intervertebral discitis [None]
  - Cardiac valve vegetation [None]
  - Hyponatraemia [None]
  - Encephalopathy [None]
  - Pancreatitis [None]
  - Central nervous system lesion [None]
  - Pulmonary mass [None]
  - Tuberculosis [None]

NARRATIVE: CASE EVENT DATE: 20210228
